FAERS Safety Report 19456864 (Version 7)
Quarter: 2025Q2

REPORT INFORMATION
  Report Type: Spontaneous
  Country: US (occurrence: US)
  Receive Date: 20210624
  Receipt Date: 20250408
  Transmission Date: 20250717
  Serious: Yes (Other)
  Sender: AMGEN
  Company Number: US-CELGENE-USA-20200403198

PATIENT
  Age: 57 Year
  Sex: Female

DRUGS (26)
  1. OTEZLA [Suspect]
     Active Substance: APREMILAST
     Indication: Psoriatic arthropathy
     Dosage: 30 MILLIGRAM, BID
     Route: 048
     Dates: start: 20180817
  2. OTEZLA [Suspect]
     Active Substance: APREMILAST
     Indication: Psoriasis
  3. TALTZ [Concomitant]
     Active Substance: IXEKIZUMAB
     Indication: Product used for unknown indication
     Route: 065
  4. TREMFYA [Concomitant]
     Active Substance: GUSELKUMAB
  5. CLOBETASOL [Concomitant]
     Active Substance: CLOBETASOL
  6. DEPO-MEDROL [Concomitant]
     Active Substance: METHYLPREDNISOLONE ACETATE
  7. IBUPROFEN [Concomitant]
     Active Substance: IBUPROFEN
  8. RESTASIS [Concomitant]
     Active Substance: CYCLOSPORINE
  9. ACETAMINOPHEN\CODEINE PHOSPHATE [Concomitant]
     Active Substance: ACETAMINOPHEN\CODEINE PHOSPHATE
  10. BENZONATATE [Concomitant]
     Active Substance: BENZONATATE
  11. BETAMETHASONE SODIUM PHOSPHATE AND BETAMETHASONE ACETATE [Concomitant]
     Active Substance: BETAMETHASONE ACETATE\BETAMETHASONE SODIUM PHOSPHATE
  12. DEXAMETHASONE PHOSPHATE [Concomitant]
     Active Substance: DEXAMETHASONE PHOSPHATE
  13. ESTRADIOL [Concomitant]
     Active Substance: ESTRADIOL
  14. LEFLUNOMIDE [Concomitant]
     Active Substance: LEFLUNOMIDE
  15. MELOXICAM [Concomitant]
     Active Substance: MELOXICAM
  16. TRETINOIN [Concomitant]
     Active Substance: TRETINOIN
  17. ALBUTEROL [Concomitant]
     Active Substance: ALBUTEROL
     Route: 065
  18. ATORVASTATIN [Concomitant]
     Active Substance: ATORVASTATIN
     Route: 065
  19. ENTRESTO [Concomitant]
     Active Substance: SACUBITRIL\VALSARTAN
     Route: 065
  20. ACETAMINOPHEN\HYDROCODONE [Concomitant]
     Active Substance: ACETAMINOPHEN\HYDROCODONE
     Route: 065
  21. METOPROLOL SUCCINATE [Concomitant]
     Active Substance: METOPROLOL SUCCINATE
     Route: 065
  22. METOPROLOL [Concomitant]
     Active Substance: METOPROLOL
     Route: 065
  23. PREGABALIN [Concomitant]
     Active Substance: PREGABALIN
     Route: 065
  24. PREGABALIN [Concomitant]
     Active Substance: PREGABALIN
     Route: 065
  25. TRAMADOL HYDROCHLORIDE [Concomitant]
     Active Substance: TRAMADOL HYDROCHLORIDE
     Route: 065
  26. VAQTA [Concomitant]
     Active Substance: HEPATITIS A VIRUS STRAIN CR 326F ANTIGEN (FORMALDEHYDE INACTIVATED)
     Route: 065

REACTIONS (7)
  - Psoriatic arthropathy [Not Recovered/Not Resolved]
  - Therapy non-responder [Unknown]
  - Stress [Unknown]
  - Product dose omission issue [Unknown]
  - Alopecia [Unknown]
  - Psoriasis [Not Recovered/Not Resolved]
  - Diarrhoea [Not Recovered/Not Resolved]

NARRATIVE: CASE EVENT DATE: 20200301
